FAERS Safety Report 4954578-X (Version None)
Quarter: 2006Q1

REPORT INFORMATION
  Report Type: 
  Country: None (occurrence: None)
  Receive Date: 20060322
  Receipt Date: 20060310
  Transmission Date: 20060701
  Serious: Yes (Death, Life-Threatening)
  Sender: FDA-Public Use
  Company Number: 2006MP000215

PATIENT
  Age: 80 Year
  Sex: Female

DRUGS (6)
  1. AGGRASTAT [Suspect]
     Indication: ANGINA UNSTABLE
     Dosage: 0.4 UG/KG/MIN; IV
     Route: 042
     Dates: start: 20060204, end: 20060204
  2. AGGRASTAT [Suspect]
     Indication: ANGINA UNSTABLE
     Dosage: 0.1 UG/KG/MIN; IV
     Route: 042
     Dates: start: 20060205, end: 20060206
  3. HEPARIN [Concomitant]
  4. INSULIN [Concomitant]
  5. METFORMIN [Concomitant]
  6. ASPIRIN [Concomitant]

REACTIONS (3)
  - CARDIOGENIC SHOCK [None]
  - CORONARY ARTERY STENOSIS [None]
  - ELECTROCARDIOGRAM ST SEGMENT DEPRESSION [None]
